FAERS Safety Report 8860765 (Version 1)
Quarter: 2012Q4

REPORT INFORMATION
  Report Type: 
  Country: US (occurrence: US)
  Receive Date: 20121026
  Receipt Date: 20121026
  Transmission Date: 20130627
  Serious: No
  Sender: FDA-Public Use
  Company Number: US-009507513-1210USA011301

PATIENT
  Age: 55 Year
  Sex: Female

DRUGS (6)
  1. INTRONA [Suspect]
     Indication: ACUTE LYMPHOCYTIC LEUKAEMIA
     Dosage: 1.5 million IU, qd
     Route: 058
  2. INTRONA [Suspect]
     Dosage: 3.0 million IU, tiw
     Route: 058
  3. INTRONA [Suspect]
     Dosage: 1.0 million IU, tiw
     Route: 058
  4. VINCRISTINE SULFATE [Concomitant]
     Indication: ACUTE LYMPHOCYTIC LEUKAEMIA
     Dosage: 2 mg, Once
     Route: 042
  5. GRANULOCYTE-MACROPHAGE COLONY STIMULATING FACTOR (UNSPECIFIED) [Concomitant]
     Dosage: 500 Microgram, tiw
     Route: 058
  6. GRANULOCYTE-MACROPHAGE COLONY STIMULATING FACTOR (UNSPECIFIED) [Concomitant]
     Dosage: UNK UNK, qw
     Route: 058

REACTIONS (3)
  - Malaise [Unknown]
  - Influenza like illness [Unknown]
  - Pyrexia [Unknown]
